FAERS Safety Report 8373338-3 (Version None)
Quarter: 2012Q2

REPORT INFORMATION
  Report Type: 
  Country: None (occurrence: None)
  Receive Date: 20120521
  Receipt Date: 20120518
  Transmission Date: 20120825
  Serious: Yes (Other)
  Sender: FDA-Public Use
  Company Number: JP-PFIZER INC-2012121675

PATIENT

DRUGS (5)
  1. LOXONIN [Concomitant]
  2. LYRICA [Suspect]
     Dosage: 4 DF/DAY, 2 IN THE MORNING AND 2 BEFORE BEDTIME
     Route: 048
  3. LYRICA [Suspect]
     Dosage: 2 DF/DAY, BEFORE BEDTIME
     Route: 048
  4. TRANSAMINE CAP [Concomitant]
  5. FLOMOX [Concomitant]

REACTIONS (2)
  - ROAD TRAFFIC ACCIDENT [None]
  - SOMNOLENCE [None]
